FAERS Safety Report 6837966-6 (Version None)
Quarter: 2010Q3

REPORT INFORMATION
  Report Type: 
  Country: None (occurrence: None)
  Receive Date: 20100713
  Receipt Date: 20070430
  Transmission Date: 20110219
  Serious: No
  Sender: FDA-Public Use
  Company Number: US-PFIZER INC-2007035335

PATIENT
  Sex: Female
  Weight: 54.545 kg

DRUGS (1)
  1. CHANTIX [Suspect]
     Indication: SMOKING CESSATION THERAPY
     Route: 048
     Dates: start: 20070426

REACTIONS (4)
  - CRYING [None]
  - DEPRESSION [None]
  - MYALGIA [None]
  - SOMNOLENCE [None]
